FAERS Safety Report 5376827-9 (Version None)
Quarter: 2007Q3

REPORT INFORMATION
  Report Type: 
  Country: None (occurrence: None)
  Receive Date: 20070703
  Receipt Date: 20070622
  Transmission Date: 20080115
  Serious: Yes (Other)
  Sender: FDA-Public Use
  Company Number: PHBS2007TR10740

PATIENT
  Age: 7 Year
  Sex: Female

DRUGS (2)
  1. METHYLPHENIDATE HCL [Suspect]
     Indication: ATTENTION DEFICIT/HYPERACTIVITY DISORDER
     Dosage: 5 MG, BID
     Route: 065
  2. METHYLPHENIDATE HCL [Suspect]
     Dosage: 10 MG/DAY
     Route: 065

REACTIONS (2)
  - EXCESSIVE MASTURBATION [None]
  - VULVAL HAEMORRHAGE [None]
